FAERS Safety Report 13652435 (Version 1)
Quarter: 2017Q2

REPORT INFORMATION
  Report Type: Spontaneous
  Country: US (occurrence: US)
  Receive Date: 20170614
  Receipt Date: 20170614
  Transmission Date: 20170830
  Serious: No
  Sender: FDA-Public Use
  Company Number: US-ROCHE-1348282

PATIENT
  Age: 78 Year
  Sex: Female

DRUGS (5)
  1. PULMICORT TURBUHALER [Concomitant]
     Active Substance: BUDESONIDE
     Route: 055
  2. NEXIUM [Concomitant]
     Active Substance: ESOMEPRAZOLE MAGNESIUM
  3. OXAZEPAM. [Concomitant]
     Active Substance: OXAZEPAM
     Route: 048
  4. LEXAPRO [Concomitant]
     Active Substance: ESCITALOPRAM OXALATE
  5. XELODA [Suspect]
     Active Substance: CAPECITABINE
     Indication: COLON CANCER
     Dosage: 2 WEEKS ON AND 1 WEEK OFF
     Route: 065

REACTIONS (4)
  - Paraesthesia [Unknown]
  - Swollen tongue [Unknown]
  - Stomatitis [Unknown]
  - Pharyngeal hypoaesthesia [Unknown]

NARRATIVE: CASE EVENT DATE: 20140202
